FAERS Safety Report 4458570-3 (Version None)
Quarter: 2004Q3

REPORT INFORMATION
  Report Type: 
  Country: None (occurrence: None)
  Receive Date: 20040917
  Receipt Date: 20031008
  Transmission Date: 20050211
  Serious: Yes (Hospitalization)
  Sender: FDA-Public Use
  Company Number: US-JNJFOC-20031002168

PATIENT
  Age: 55 Year
  Sex: Female

DRUGS (6)
  1. TOPAMAX [Suspect]
     Indication: DRUG USE FOR UNKNOWN INDICATION
     Dosage: ORAL
     Route: 047
  2. EFFEXOR XR [Concomitant]
  3. MIRAPEX [Concomitant]
  4. SINEMET CR (SINEMET) [Concomitant]
  5. SYMMETREL [Concomitant]
  6. DETROL LA (TOLTERODIINE L-TARTRATE) [Concomitant]

REACTIONS (1)
  - METABOLIC ACIDOSIS [None]
